FAERS Safety Report 24720584 (Version 1)
Quarter: 2024Q4

REPORT INFORMATION
  Report Type: Other
  Country: ES (occurrence: ES)
  Receive Date: 20241211
  Receipt Date: 20241211
  Transmission Date: 20250115
  Serious: Yes (Hospitalization, Other)
  Sender: ZYDUS PHARM
  Company Number: None

PATIENT

DRUGS (12)
  1. LEVOFLOXACIN [Suspect]
     Active Substance: LEVOFLOXACIN
     Indication: Infection
     Dosage: 500 MILLIGRAM, QD
     Route: 048
     Dates: start: 20240910, end: 20241011
  2. RIFAMPIN [Suspect]
     Active Substance: RIFAMPIN
     Indication: Infection
     Dosage: 300 MILLIGRAM EVERY 2 DAYS
     Route: 048
     Dates: start: 20240925, end: 20241011
  3. PYRILAMINE [Concomitant]
     Active Substance: PYRILAMINE
     Indication: Product used for unknown indication
     Dosage: 10 MILLILITER/8 H
     Route: 048
  4. DEFLAZACORT [Concomitant]
     Active Substance: DEFLAZACORT
     Indication: Product used for unknown indication
     Dosage: UNK
     Route: 048
  5. DEXCHLORPHENIRAMINE [Concomitant]
     Active Substance: DEXCHLORPHENIRAMINE
     Indication: Product used for unknown indication
     Dosage: UNK UNK, QD
     Route: 048
  6. ACIDO FUSIDICO [Concomitant]
     Indication: Product used for unknown indication
     Dosage: UNK UNK, 12 HR
     Route: 061
  7. METHYLPREDNISOLONE [Concomitant]
     Active Substance: METHYLPREDNISOLONE
     Indication: Product used for unknown indication
     Dosage: UNK UNK, 12H
     Route: 061
  8. ASPIRIN [Concomitant]
     Active Substance: ASPIRIN
     Indication: Product used for unknown indication
     Dosage: UNK UNK/24 HRS
     Route: 048
  9. CHOLECALCIFEROL [Concomitant]
     Active Substance: CHOLECALCIFEROL
     Indication: Product used for unknown indication
     Dosage: UNK
     Route: 048
  10. DUTASTERIDA/TAMSULOSINA [Concomitant]
     Indication: Product used for unknown indication
     Dosage: UNK UNK, 24 HR
     Route: 048
  11. BUDESONIDE\FORMOTEROL\GLYCOPYRRONIUM [Concomitant]
     Active Substance: BUDESONIDE\FORMOTEROL\GLYCOPYRRONIUM
     Indication: Product used for unknown indication
     Dosage: UNK UNK, 12 HRS
  12. OMEPRAZOLE SODIUM [Concomitant]
     Active Substance: OMEPRAZOLE SODIUM
     Indication: Product used for unknown indication
     Dosage: UNK UNK/24 HRS
     Route: 048

REACTIONS (1)
  - Toxic skin eruption [Recovered/Resolved]

NARRATIVE: CASE EVENT DATE: 20241011
